FAERS Safety Report 9476732 (Version 2)
Quarter: 2013Q3

REPORT INFORMATION
  Report Type: Spontaneous
  Country: US (occurrence: US)
  Receive Date: 20130826
  Receipt Date: 20130826
  Transmission Date: 20140515
  Serious: Yes (Other)
  Sender: FDA-Public Use
  Company Number: US-BRISTOL-MYERS SQUIBB COMPANY-17413386

PATIENT
  Age: 81 Year
  Sex: Female
  Weight: 53.06 kg

DRUGS (2)
  1. KENALOG-40 [Suspect]
     Indication: ARTHRITIS
     Dates: start: 20130213
  2. GLIPIZIDE [Concomitant]
     Indication: DIABETES MELLITUS
     Dosage: EARLIER AT 2.5 OR 5MG DAILY

REACTIONS (1)
  - Blood glucose increased [Unknown]
